FAERS Safety Report 10049329 (Version 1)
Quarter: 2014Q2

REPORT INFORMATION
  Report Type: Other
  Country: GB (occurrence: GB)
  Receive Date: 20140401
  Receipt Date: 20140401
  Transmission Date: 20141212
  Serious: Yes (Other)
  Sender: FDA-Public Use
  Company Number: GB-LUPIN PHARMACEUTICALS INC.-E2B_00001853

PATIENT
  Age: 71 Year
  Sex: Male

DRUGS (8)
  1. IRBESARTAN [Suspect]
     Indication: HYPERTENSION
     Route: 065
     Dates: start: 20131209, end: 20140207
  2. IRBESARTAN [Suspect]
     Route: 065
  3. LERCANIDIPINE HYDROCHLORIDE [Suspect]
     Indication: HYPERTENSION
     Route: 065
     Dates: start: 2004, end: 20140207
  4. LERCANIDIPINE HYDROCHLORIDE [Suspect]
     Route: 065
     Dates: start: 20140303
  5. ASPIRIN [Suspect]
     Indication: ANTICOAGULANT THERAPY
     Route: 065
     Dates: start: 2006, end: 20140207
  6. ATENOLOL [Suspect]
     Indication: PRODUCT USED FOR UNKNOWN INDICATION
     Route: 065
     Dates: end: 20140207
  7. BENDROFLUMETHIAZIDE [Suspect]
     Indication: PRODUCT USED FOR UNKNOWN INDICATION
     Route: 065
     Dates: start: 2004, end: 20140207
  8. DOXAZOSIN [Suspect]
     Indication: PRODUCT USED FOR UNKNOWN INDICATION
     Route: 065
     Dates: start: 20140207, end: 20140207

REACTIONS (9)
  - Rash pruritic [Not Recovered/Not Resolved]
  - Lip swelling [Not Recovered/Not Resolved]
  - Ocular hyperaemia [Not Recovered/Not Resolved]
  - Eye pruritus [Not Recovered/Not Resolved]
  - Rash macular [Not Recovered/Not Resolved]
  - Erythema [Not Recovered/Not Resolved]
  - Erythema [Not Recovered/Not Resolved]
  - Diarrhoea [Not Recovered/Not Resolved]
  - Abdominal pain upper [Not Recovered/Not Resolved]
